FAERS Safety Report 9580336 (Version 1)
Quarter: 2013Q4

REPORT INFORMATION
  Report Type: Spontaneous
  Country: US (occurrence: US)
  Receive Date: 20131002
  Receipt Date: 20131002
  Transmission Date: 20140711
  Serious: No
  Sender: FDA-Public Use
  Company Number: US-BAYER-2013-118820

PATIENT
  Sex: Female

DRUGS (5)
  1. ALEVE CAPLET [Suspect]
     Indication: HEADACHE
  2. EXCEDRIN [ACETYLSALICYLIC ACID,CAFFEINE,PARACETAMOL] [Concomitant]
  3. TYLENOL [PARACETAMOL] [Concomitant]
  4. IBUPROFEN [Concomitant]
  5. CAFFEINE [CAFFEINE] [Concomitant]

REACTIONS (1)
  - Drug ineffective [None]
